FAERS Safety Report 21586193 (Version 1)
Quarter: 2022Q4

REPORT INFORMATION
  Report Type: Spontaneous
  Country: IT (occurrence: IT)
  Receive Date: 20221112
  Receipt Date: 20221112
  Transmission Date: 20230113
  Serious: Yes (Death, Other)
  Sender: FDA-Public Use
  Company Number: IT-AMGEN-ITASP2022190826

PATIENT

DRUGS (2)
  1. TRASTUZUMAB [Suspect]
     Active Substance: TRASTUZUMAB
     Indication: Breast cancer
     Dosage: UNK
     Route: 065
  2. PERTUZUMAB [Suspect]
     Active Substance: PERTUZUMAB
     Indication: Breast cancer
     Dosage: UNK
     Route: 065

REACTIONS (6)
  - Ischaemic stroke [Fatal]
  - Cardiac tamponade [Unknown]
  - Ventricular extrasystoles [Unknown]
  - Off label use [Unknown]
  - Left ventricular dysfunction [Unknown]
  - Hypertension [Unknown]
